FAERS Safety Report 4343495-4 (Version None)
Quarter: 2004Q2

REPORT INFORMATION
  Report Type: 
  Country: None (occurrence: None)
  Receive Date: 20040422
  Receipt Date: 20030321
  Transmission Date: 20050107
  Serious: Yes (Death, Life-Threatening, Hospitalization)
  Sender: FDA-Public Use
  Company Number: PHEH2003US02567

PATIENT
  Age: 10 Year
  Sex: Male

DRUGS (1)
  1. DESFERAL [Suspect]
     Indication: BLOOD IRON INCREASED
     Dosage: 9 GRAMS/DAY/5 DAYS
     Route: 058

REACTIONS (7)
  - ACUTE RESPIRATORY DISTRESS SYNDROME [None]
  - BLOOD CREATININE ABNORMAL [None]
  - COMA [None]
  - DEATH [None]
  - METABOLIC ACIDOSIS [None]
  - OVERDOSE [None]
  - RESPIRATORY DISTRESS [None]
